FAERS Safety Report 4334685-5 (Version None)
Quarter: 2004Q1

REPORT INFORMATION
  Report Type: 
  Country: None (occurrence: None)
  Receive Date: 20040329
  Receipt Date: 20031212
  Transmission Date: 20041129
  Serious: No
  Sender: FDA-Public Use
  Company Number: 03P-163-0244404

PATIENT
  Age: 64 Year
  Sex: Female

DRUGS (10)
  1. HUMIRA [Suspect]
     Indication: RHEUMATOID ARTHRITIS
     Dosage: SEE IMAGE
     Route: 058
     Dates: start: 20030328, end: 20030411
  2. HUMIRA [Suspect]
     Indication: RHEUMATOID ARTHRITIS
     Dosage: SEE IMAGE
     Route: 058
     Dates: start: 20031015
  3. METHOTREXATE [Concomitant]
  4. CELECOXIB [Concomitant]
  5. RABEPRAZOLE SODIUM [Concomitant]
  6. RISEDRONATE SODIUM [Concomitant]
  7. BISELECT [Concomitant]
  8. FOLIC ACID [Concomitant]
  9. METHYLPREDNISOLONE [Concomitant]
  10. RALOXIFENE HCL [Concomitant]

REACTIONS (2)
  - INJECTION SITE BURNING [None]
  - INJECTION SITE URTICARIA [None]
